FAERS Safety Report 16941593 (Version 3)
Quarter: 2020Q1

REPORT INFORMATION
  Report Type: Spontaneous
  Country: CA (occurrence: CA)
  Receive Date: 20191021
  Receipt Date: 20200108
  Transmission Date: 20200409
  Serious: Yes (Other)
  Sender: FDA-Public Use
  Company Number: CA-GLAXOSMITHKLINE-CA2019AMR188663

PATIENT
  Sex: Female

DRUGS (1)
  1. BENLYSTA [Suspect]
     Active Substance: BELIMUMAB
     Indication: SYSTEMIC LUPUS ERYTHEMATOSUS
     Dosage: 10 MG/KG, UNK

REACTIONS (7)
  - Inflammation [Unknown]
  - Cardiomegaly [Unknown]
  - Dyspnoea [Unknown]
  - Peripheral swelling [Unknown]
  - Cardiac failure [Unknown]
  - Adverse drug reaction [Unknown]
  - Pneumonia [Unknown]
